FAERS Safety Report 23561458 (Version 5)
Quarter: 2025Q1

REPORT INFORMATION
  Report Type: Spontaneous
  Country: US (occurrence: US)
  Receive Date: 20240225
  Receipt Date: 20250113
  Transmission Date: 20250409
  Serious: Yes (Hospitalization, Other)
  Sender: SANDOZ
  Company Number: US-SANDOZ-SDZ2024US016992

PATIENT
  Sex: Female

DRUGS (6)
  1. TREPROSTINIL [Suspect]
     Active Substance: TREPROSTINIL
     Indication: Pulmonary arterial hypertension
     Route: 042
     Dates: start: 202302
  2. TREPROSTINIL [Suspect]
     Active Substance: TREPROSTINIL
     Route: 042
     Dates: start: 202108
  3. TREPROSTINIL [Suspect]
     Active Substance: TREPROSTINIL
     Route: 042
  4. TREPROSTINIL [Suspect]
     Active Substance: TREPROSTINIL
     Route: 042
     Dates: start: 202108
  5. TREPROSTINIL [Suspect]
     Active Substance: TREPROSTINIL
     Route: 042
  6. TADALAFIL [Concomitant]
     Active Substance: TADALAFIL
     Indication: Product used for unknown indication
     Route: 065

REACTIONS (11)
  - Gastrointestinal haemorrhage [Unknown]
  - Abdominal discomfort [Unknown]
  - Hospitalisation [Unknown]
  - Diarrhoea [Unknown]
  - Headache [Unknown]
  - Hypotension [Unknown]
  - Pain in jaw [Unknown]
  - Pain in extremity [Unknown]
  - Cardiac failure chronic [Unknown]
  - Pulmonary hypertension [Unknown]
  - Product preparation error [Unknown]
